FAERS Safety Report 23849895 (Version 2)
Quarter: 2024Q3

REPORT INFORMATION
  Report Type: Spontaneous
  Country: IN (occurrence: IN)
  Receive Date: 20240513
  Receipt Date: 20240830
  Transmission Date: 20241017
  Serious: Yes (Other)
  Sender: PFIZER
  Company Number: IN-PFIZER INC-PV202300111220

PATIENT
  Age: 63 Year
  Sex: Female

DRUGS (11)
  1. PALBOCICLIB [Suspect]
     Active Substance: PALBOCICLIB
     Indication: Breast cancer metastatic
     Dosage: 125 MG, CYCLIC (125 MG ONCE A DAY AFTER FOOD - 21 DAYS ON THEN 7 DAYS OFF THEN RESUME)
     Route: 048
     Dates: start: 202201
  2. PALBOCICLIB [Suspect]
     Active Substance: PALBOCICLIB
     Indication: Metastatic renal cell carcinoma
  3. EXEMESTANE [Concomitant]
     Active Substance: EXEMESTANE
     Indication: Breast cancer metastatic
     Dosage: 25 MG, 1X/DAY
     Route: 048
     Dates: start: 202110
  4. XGEVA [Concomitant]
     Active Substance: DENOSUMAB
     Dosage: 4 MG, EVERY 3 MONTHS
     Route: 042
  5. XGEVA [Concomitant]
     Active Substance: DENOSUMAB
     Dosage: 120 MG, EVERY 3 MONTHS
     Route: 058
  6. CALCIUM\CHOLECALCIFEROL [Concomitant]
     Active Substance: CALCIUM\CHOLECALCIFEROL
     Dosage: UNK
  7. ZOLPIDEM TARTRATE [Concomitant]
     Active Substance: ZOLPIDEM TARTRATE
     Dosage: 1 DF, 1X/DAY (AT BEDTIME)
  8. FEFOL Z [Concomitant]
     Dosage: 1 DF, 1X/DAY
     Route: 048
  9. ORS [GLUCOSE;POTASSIUM CHLORIDE;SODIUM CHLORIDE;SODIUM CITRATE DIHYDRA [Concomitant]
     Indication: Asthenia
     Dosage: 1 SACHET IN 1L OF WATER, AS NEEDED
  10. MINERAL OIL [Concomitant]
     Active Substance: MINERAL OIL
     Dosage: FOR LOCAL APPLICATION IN NOSTRILS
  11. COCONUT OIL [Concomitant]
     Active Substance: COCONUT OIL
     Dosage: FOR LOCAL APPLICATION IN NOSTRILS

REACTIONS (2)
  - Patellofemoral pain syndrome [Unknown]
  - Vulvovaginal pruritus [Unknown]

NARRATIVE: CASE EVENT DATE: 20240418
